FAERS Safety Report 10498054 (Version 1)
Quarter: 2014Q3

REPORT INFORMATION
  Report Type: Spontaneous
  Country: US (occurrence: None)
  Receive Date: 20140815
  Receipt Date: 20140815
  Transmission Date: 20150326
  Serious: Yes (Other)
  Sender: FDA-Public Use
  Company Number: ADR-2013-02358

PATIENT
  Age: 50 Year
  Sex: Male

DRUGS (2)
  1. DILAUDID [Suspect]
     Active Substance: HYDROMORPHONE HYDROCHLORIDE
  2. COMPOUNDED BACLOFEN (INTRATHECAL) - 2000 MCG/ML [Suspect]
     Active Substance: BACLOFEN
     Indication: CANCER PAIN

REACTIONS (2)
  - Pain [None]
  - No therapeutic response [None]

NARRATIVE: CASE EVENT DATE: 20131223
